FAERS Safety Report 17010088 (Version 3)
Quarter: 2019Q4

REPORT INFORMATION
  Report Type: Spontaneous
  Country: US (occurrence: US)
  Receive Date: 20191108
  Receipt Date: 20191224
  Transmission Date: 20200122
  Serious: Yes (Hospitalization)
  Sender: FDA-Public Use
  Company Number: US-VERTEX PHARMACEUTICALS-2019-010825

PATIENT
  Age: 10 Year
  Sex: Male
  Weight: 44 kg

DRUGS (25)
  1. FLONASE [Concomitant]
     Active Substance: FLUTICASONE PROPIONATE
     Dosage: UNK2 SPRAY EACH NOSTRIL, QD
     Dates: start: 20191008
  2. ZYVOX [Concomitant]
     Active Substance: LINEZOLID
     Dosage: 1 DOSAGE FORM, BID
     Route: 048
     Dates: start: 20191108
  3. PULMOZYME [Concomitant]
     Active Substance: DORNASE ALFA
     Dosage: 2.5 MG, QD
     Route: 055
     Dates: start: 20190130
  4. IBUPROFEN. [Concomitant]
     Active Substance: IBUPROFEN
     Indication: HEADACHE
  5. VERSED [Concomitant]
     Active Substance: MIDAZOLAM HYDROCHLORIDE
     Dosage: 1.5 MILLILITER, PRN,
     Route: 045
     Dates: start: 20191031
  6. TRILEPTAL [Concomitant]
     Active Substance: OXCARBAZEPINE
     Dosage: 1 DOSAGE FORM, BID
     Route: 048
     Dates: start: 20191031
  7. CIPRO [Concomitant]
     Active Substance: CIPROFLOXACIN HYDROCHLORIDE
     Dosage: 1 DOSAGE FORM, BID
     Route: 048
     Dates: start: 20191108
  8. PERTZYE [Concomitant]
     Active Substance: PANCRELIPASE AMYLASE\PANCRELIPASE LIPASE\PANCRELIPASE PROTEASE
     Dosage: 5 WITH MEALS,2-3 WITH SNACKS DAILY
     Dates: start: 20191014
  9. MOMETASONE [Concomitant]
     Active Substance: MOMETASONE
     Dosage: 30 DOSAGE FORM, QD,I PUFF
     Dates: start: 20190308
  10. MIRALAX [Concomitant]
     Active Substance: POLYETHYLENE GLYCOL 3350
     Indication: CONSTIPATION
     Dosage: 17 GRAM, QD
     Route: 048
     Dates: start: 20181025
  11. ORKAMBI [Suspect]
     Active Substance: IVACAFTOR\LUMACAFTOR
     Indication: CYSTIC FIBROSIS
     Dosage: 2 DOSAGE FORM, BID
     Route: 048
     Dates: start: 20170425
  12. VITAMIN D3 [Concomitant]
     Active Substance: CHOLECALCIFEROL
     Dosage: 1 DOSAGE FORM, QD
     Route: 048
     Dates: start: 20190815
  13. TOBI PODHALER [Concomitant]
     Active Substance: TOBRAMYCIN
     Dosage: 112 MG, BID, 28 DAYS ON AND OFF
     Route: 055
     Dates: start: 20190326
  14. ALBUTEROL SULFATE. [Concomitant]
     Active Substance: ALBUTEROL SULFATE
     Dosage: 2.5 MG, BID
     Route: 055
     Dates: start: 20191002
  15. PROVENTIL HFA [SALBUTAMOL] [Concomitant]
     Indication: COUGH
     Dosage: 90 MICROGRAM, PRN,2-4 PUFFS EVERY 3-4 HOURS
     Dates: start: 20191002
  16. PROVENTIL HFA [SALBUTAMOL] [Concomitant]
     Indication: WHEEZING
  17. ZITHROMAX [Concomitant]
     Active Substance: AZITHROMYCIN DIHYDRATE
     Dosage: 1 TABLET 3 TIMES A WEEK/ MWF
     Route: 048
     Dates: start: 20190211
  18. ZYRTEC [Concomitant]
     Active Substance: CETIRIZINE HYDROCHLORIDE
     Dosage: 1 DOSAGE FORM, QD
     Route: 048
     Dates: start: 20190606
  19. LACTOBACILLUS RHAMNOSUS [Concomitant]
     Active Substance: LACTOBACILLUS RHAMNOSUS
     Dosage: 1 DOSAGE FORM, PRN
     Route: 048
  20. PREVACID [Concomitant]
     Active Substance: LANSOPRAZOLE
     Dosage: 1 DOSAGE FORM, QD
     Route: 048
     Dates: start: 20191008, end: 20191108
  21. FOLIC ACID. [Concomitant]
     Active Substance: FOLIC ACID
     Dosage: 1 DOSAGE FORM, THREE TIMES A WEEK
     Route: 048
     Dates: start: 20190913
  22. SODIUM CHLORIDE. [Concomitant]
     Active Substance: SODIUM CHLORIDE
     Dosage: 4 MILLILITER, BID
     Route: 055
     Dates: start: 20191016
  23. ACTIGALL [Concomitant]
     Active Substance: URSODIOL
     Dosage: 1 DOSAGE FORM, BID
     Route: 048
     Dates: start: 20190722
  24. GUAIFENESIN. [Concomitant]
     Active Substance: GUAIFENESIN
     Dosage: 400 MG, BID
     Route: 048
  25. IBUPROFEN. [Concomitant]
     Active Substance: IBUPROFEN
     Indication: PAIN
     Dosage: 150 MG, TID
     Route: 048

REACTIONS (1)
  - Ependymoma malignant [Recovered/Resolved]

NARRATIVE: CASE EVENT DATE: 201809
